FAERS Safety Report 18682984 (Version 2)
Quarter: 2021Q1

REPORT INFORMATION
  Report Type: Spontaneous
  Country: JP (occurrence: JP)
  Receive Date: 20201230
  Receipt Date: 20210113
  Transmission Date: 20210419
  Serious: Yes (Death)
  Sender: FDA-Public Use
  Company Number: JP-MYLANLABS-2020M1104569

PATIENT
  Age: 89 Year
  Sex: Male

DRUGS (1)
  1. TAZOPIPE FOR COMBINATION INJECTION 4.5 [PFIZER] [Suspect]
     Active Substance: PIPERACILLIN SODIUM\TAZOBACTAM SODIUM
     Indication: PRODUCT USED FOR UNKNOWN INDICATION
     Dosage: 4.5 GRAM, BID
     Route: 041

REACTIONS (1)
  - Acute kidney injury [Fatal]
